FAERS Safety Report 12259420 (Version 1)
Quarter: 2016Q2

REPORT INFORMATION
  Report Type: Spontaneous
  Country: US (occurrence: US)
  Receive Date: 20160412
  Receipt Date: 20160412
  Transmission Date: 20160815
  Serious: No
  Sender: FDA-Public Use
  Company Number: US-SA-2015SA091215

PATIENT
  Age: 63 Year
  Sex: Male

DRUGS (1)
  1. ALLEGRA ALLERGY [Suspect]
     Active Substance: FEXOFENADINE HYDROCHLORIDE
     Indication: NASAL CONGESTION
     Dosage: PRODUCT START DATE: ~2 WEEKS AGO?PRODUCT STOP DATE: ~2 WEEKS AGO
     Route: 048

REACTIONS (1)
  - Dyspnoea [Recovered/Resolved]
